FAERS Safety Report 6762344-8 (Version None)
Quarter: 2010Q2

REPORT INFORMATION
  Report Type: 
  Country: None (occurrence: None)
  Receive Date: 20100609
  Receipt Date: 20100602
  Transmission Date: 20101027
  Serious: Yes (Other)
  Sender: FDA-Public Use
  Company Number: BE-B.I. PHARMACEUTICALS,INC./RIDGEFIELD-2010-BP-06437YA

PATIENT
  Sex: Male

DRUGS (1)
  1. OMNIC OCAS ORODISPERSABLE CR [Suspect]
     Dosage: 0.4 MG

REACTIONS (3)
  - HYPOTENSION [None]
  - ROAD TRAFFIC ACCIDENT [None]
  - SYNCOPE [None]
